FAERS Safety Report 8286733-8 (Version None)
Quarter: 2012Q2

REPORT INFORMATION
  Report Type: 
  Country: None (occurrence: None)
  Receive Date: 20120416
  Receipt Date: 20120412
  Transmission Date: 20120825
  Serious: No
  Sender: FDA-Public Use
  Company Number: US-BAYER-2012-035957

PATIENT
  Age: 67 Year
  Sex: Female
  Weight: 67.12 kg

DRUGS (3)
  1. ULTRAVIST 150 [Suspect]
     Indication: UROGRAM
     Dosage: 100 ML, UNK, POWER INJECTOR
     Route: 042
     Dates: start: 20120412
  2. HYDROCHLOROTHIAZIDE [Concomitant]
  3. LOSARTAN POTASSIUM [Concomitant]

REACTIONS (1)
  - URTICARIA [None]
